FAERS Safety Report 10896495 (Version 3)
Quarter: 2020Q2

REPORT INFORMATION
  Report Type: Spontaneous
  Country: US (occurrence: US)
  Receive Date: 20150309
  Receipt Date: 20200430
  Transmission Date: 20200713
  Serious: Yes (Other)
  Sender: FDA-Public Use
  Company Number: US-LUPIN PHARMACEUTICALS INC.-E2B_00003258

PATIENT
  Sex: Female
  Weight: 72.58 kg

DRUGS (5)
  1. SIMVASTATIN TABLETS USP, 20 MG [Suspect]
     Active Substance: SIMVASTATIN
     Indication: BLOOD CHOLESTEROL INCREASED
     Dosage: 20 MILLIGRAM
     Route: 065
     Dates: start: 2008, end: 2008
  2. SIMVASTATIN TABLETS USP, 10 MG [Suspect]
     Active Substance: SIMVASTATIN
     Dosage: 10 MILLIGRAM, QD
     Route: 048
     Dates: start: 201905
  3. PRILOSEC [Concomitant]
     Active Substance: OMEPRAZOLE MAGNESIUM
     Indication: GASTROOESOPHAGEAL REFLUX DISEASE
     Dosage: 40 MILLIGRAM, QD
     Route: 048
  4. SIMVASTATIN TABLETS USP, 10 MG [Suspect]
     Active Substance: SIMVASTATIN
     Indication: HYPERCHOLESTEROLAEMIA
     Dosage: 10 MILLIGRAM, QD
     Route: 048
     Dates: start: 2011
  5. SIMVASTATIN TABLETS USP, 10 MG [Suspect]
     Active Substance: SIMVASTATIN
     Dosage: 20 MILLIGRAM, QD
     Route: 048
     Dates: start: 201904

REACTIONS (13)
  - Malaise [Unknown]
  - Condition aggravated [Unknown]
  - Muscular weakness [Recovered/Resolved]
  - Limb discomfort [Unknown]
  - Dry skin [Unknown]
  - Interstitial lung disease [Not Recovered/Not Resolved]
  - Chromaturia [Unknown]
  - Adverse reaction [Recovered/Resolved]
  - Alopecia [Unknown]
  - Gingival disorder [Not Recovered/Not Resolved]
  - Memory impairment [Unknown]
  - Skin exfoliation [Unknown]
  - Onychoclasis [Unknown]

NARRATIVE: CASE EVENT DATE: 2008
